FAERS Safety Report 18539898 (Version 1)
Quarter: 2020Q4

REPORT INFORMATION
  Report Type: Spontaneous
  Country: US (occurrence: US)
  Receive Date: 20201124
  Receipt Date: 20201124
  Transmission Date: 20210114
  Serious: No
  Sender: FDA-Public Use
  Company Number: None

PATIENT
  Age: 86 Year
  Sex: Male
  Weight: 140 kg

DRUGS (1)
  1. REMDESIVIR. [Suspect]
     Active Substance: REMDESIVIR
     Indication: COVID-19
     Route: 042
     Dates: start: 20201113, end: 20201117

REACTIONS (4)
  - Rash [None]
  - Exfoliative rash [None]
  - Rash erythematous [None]
  - Rash papular [None]

NARRATIVE: CASE EVENT DATE: 20201118
